FAERS Safety Report 4545297-2 (Version None)
Quarter: 2005Q1

REPORT INFORMATION
  Report Type: 
  Country: None (occurrence: None)
  Receive Date: 20050105
  Receipt Date: 20041229
  Transmission Date: 20050727
  Serious: Yes (Death)
  Sender: FDA-Public Use
  Company Number: US-JNJFOC-20050100034

PATIENT
  Sex: Female

DRUGS (1)
  1. RISPERDAL [Suspect]
     Route: 049

REACTIONS (1)
  - ANEURYSM [None]
